FAERS Safety Report 17133542 (Version 4)
Quarter: 2020Q1

REPORT INFORMATION
  Report Type: Spontaneous
  Country: FR (occurrence: FR)
  Receive Date: 20191210
  Receipt Date: 20200224
  Transmission Date: 20200409
  Serious: Yes (Life-Threatening, Hospitalization, Other)
  Sender: FDA-Public Use
  Company Number: FR-AUROBINDO-AUR-APL-2019-103021

PATIENT
  Age: 58 Year
  Sex: Female

DRUGS (7)
  1. DIACETOLOL [Concomitant]
     Indication: PRODUCT USED FOR UNKNOWN INDICATION
     Dosage: UNK
     Route: 065
  2. ACEBUTOLOL 200MG [Suspect]
     Active Substance: ACEBUTOLOL
     Indication: PRODUCT USED FOR UNKNOWN INDICATION
     Dosage: 200 MILLIGRAM
     Route: 065
  3. NAPROXEN 550 MG FILM COATED TABLETS [Suspect]
     Active Substance: NAPROXEN
     Indication: PRODUCT USED FOR UNKNOWN INDICATION
     Dosage: 550 MILLIGRAM (INGESTED)
     Route: 048
  4. NAPROXEN 550 MG FILM COATED TABLETS [Suspect]
     Active Substance: NAPROXEN
     Dosage: 26 GRAM ONCE IN TOTAL (SUPPOSED INGESTED DOSE (SID) OFNAPROXEN)
     Route: 048
  5. OXAZEPAM. [Suspect]
     Active Substance: OXAZEPAM
     Indication: PRODUCT USED FOR UNKNOWN INDICATION
     Dosage: 50 MILLIGRAM
     Route: 065
  6. ZOPICLONE 7.5MG [Suspect]
     Active Substance: ZOPICLONE
     Indication: PRODUCT USED FOR UNKNOWN INDICATION
     Dosage: 7.5 MILLIGRAM
     Route: 065
  7. CITALOPRAM [Suspect]
     Active Substance: CITALOPRAM HYDROBROMIDE
     Indication: PRODUCT USED FOR UNKNOWN INDICATION
     Dosage: 10 MILLIGRAM
     Route: 065

REACTIONS (19)
  - Bradycardia [Recovered/Resolved]
  - Pneumonia aspiration [Unknown]
  - Hypotension [Recovered/Resolved]
  - Coma [Recovered/Resolved]
  - Thrombocytopenia [Recovered/Resolved]
  - Sinus rhythm [Recovered/Resolved]
  - Cardiogenic shock [Recovered/Resolved]
  - Toxicity to various agents [Recovered/Resolved]
  - Coagulopathy [Recovered/Resolved]
  - Haemodynamic instability [Recovered/Resolved]
  - Intentional overdose [Recovered/Resolved]
  - Hypocoagulable state [Recovered/Resolved]
  - Electrocardiogram QT prolonged [Recovering/Resolving]
  - Poisoning [Recovered/Resolved]
  - Psychomotor retardation [Recovering/Resolving]
  - Somnolence [Recovering/Resolving]
  - Speech disorder [Recovering/Resolving]
  - Suicide attempt [Unknown]
  - Lactic acidosis [Recovered/Resolved]
